FAERS Safety Report 5989458-4 (Version None)
Quarter: 2008Q4

REPORT INFORMATION
  Report Type: 
  Country: None (occurrence: None)
  Receive Date: 20081205
  Receipt Date: 20081201
  Transmission Date: 20090506
  Serious: Yes (Life-Threatening)
  Sender: FDA-Public Use
  Company Number: APP200801195

PATIENT

DRUGS (2)
  1. HEPARIN SODIUM INJECTION [Suspect]
     Indication: THROMBOSIS PROPHYLAXIS
     Dosage: IN ER; 1500 USP UNITS, 2 DOSES 40 MINUTES APART, INTRAVENOUS
     Route: 042
     Dates: start: 20081130
  2. HEPARIN SODIUM INJECTION [Suspect]
     Indication: THROMBOSIS PROPHYLAXIS
     Dosage: IN ER; 1500 USP UNITS, 2 DOSES 40 MINUTES APART, INTRAVENOUS
     Route: 042
     Dates: start: 20081130

REACTIONS (1)
  - RESPIRATORY DISTRESS [None]
